FAERS Safety Report 9424456 (Version 1)
Quarter: 2013Q3

REPORT INFORMATION
  Report Type: Spontaneous
  Country: US (occurrence: US)
  Receive Date: 20130729
  Receipt Date: 20130729
  Transmission Date: 20140515
  Serious: Yes (Other)
  Sender: FDA-Public Use
  Company Number: US-COVIDIEN/TYCO HEALTHCARE/MALLINCKRODT-T201303801

PATIENT
  Age: 23 Year
  Sex: Female
  Weight: 52.61 kg

DRUGS (4)
  1. METHYLPHENIDATE HYDROCHLORIDE EXTENDED RELEASE TABLETS [Suspect]
     Indication: ATTENTION DEFICIT/HYPERACTIVITY DISORDER
     Dosage: 36 MG, QD
     Route: 048
     Dates: start: 201305, end: 20130517
  2. METHYLPHENIDATE HYDROCHLORIDE EXTENDED RELEASE TABLETS [Suspect]
     Indication: DEPRESSION
  3. FLUOXETINE [Concomitant]
     Indication: DEPRESSION
     Dosage: UNK
     Route: 065
  4. CONCERTA [Concomitant]
     Dosage: UNK

REACTIONS (3)
  - Suicidal ideation [Recovered/Resolved]
  - Disturbance in attention [Recovered/Resolved]
  - Depression [Recovered/Resolved]
